FAERS Safety Report 16630849 (Version 1)
Quarter: 2019Q3

REPORT INFORMATION
  Report Type: Spontaneous
  Country: ES (occurrence: ES)
  Receive Date: 20190725
  Receipt Date: 20190725
  Transmission Date: 20191004
  Serious: Yes (Life-Threatening, Hospitalization, Other)
  Sender: FDA-Public Use
  Company Number: ES-AUROBINDO-AUR-APL-2019-039629

PATIENT

DRUGS (19)
  1. TRAZODONE [Suspect]
     Active Substance: TRAZODONE HYDROCHLORIDE
     Indication: PSYCHOTHERAPY
     Dosage: 200 MILLIGRAM, DAILY
     Route: 065
  2. PIMOZIDE. [Suspect]
     Active Substance: PIMOZIDE
     Indication: MANIA
  3. PIMOZIDE. [Suspect]
     Active Substance: PIMOZIDE
     Indication: PSYCHOTHERAPY
     Dosage: 2 MILLIGRAM, ONCE A DAY
     Route: 065
  4. HALOPERIDOL. [Suspect]
     Active Substance: HALOPERIDOL
     Indication: PSYCHOTHERAPY
     Dosage: 3 MILLIGRAM, ONCE A DAY
     Route: 065
  5. HYDROXYZINE [Suspect]
     Active Substance: HYDROXYZINE HYDROCHLORIDE
     Indication: BIPOLAR DISORDER
  6. TRAZODONE [Suspect]
     Active Substance: TRAZODONE HYDROCHLORIDE
     Indication: BIPOLAR DISORDER
  7. LORMETAZEPAM [Suspect]
     Active Substance: LORMETAZEPAM
     Indication: MANIA
  8. PIMOZIDE. [Suspect]
     Active Substance: PIMOZIDE
     Indication: BIPOLAR DISORDER
  9. SERTRALINE [Suspect]
     Active Substance: SERTRALINE HYDROCHLORIDE
     Indication: PSYCHOTHERAPY
     Dosage: 25 MILLIGRAM, DAILY
     Route: 065
  10. SERTRALINE [Suspect]
     Active Substance: SERTRALINE HYDROCHLORIDE
     Indication: MANIA
     Dosage: 200 MILLIGRAM, DAILY
     Route: 065
  11. HYDROXYZINE [Suspect]
     Active Substance: HYDROXYZINE HYDROCHLORIDE
     Indication: PSYCHOTHERAPY
     Dosage: 50 MILLIGRAM, ONCE A DAY
     Route: 065
  12. HALOPERIDOL. [Suspect]
     Active Substance: HALOPERIDOL
     Indication: MANIA
  13. SIMVASTATIN. [Concomitant]
     Active Substance: SIMVASTATIN
     Indication: DYSLIPIDAEMIA
     Dosage: 10 MILLIGRAM, ONCE A DAY
     Route: 065
  14. TRAZODONE [Suspect]
     Active Substance: TRAZODONE HYDROCHLORIDE
     Indication: MANIA
  15. LORMETAZEPAM [Suspect]
     Active Substance: LORMETAZEPAM
     Indication: BIPOLAR DISORDER
  16. HALOPERIDOL. [Suspect]
     Active Substance: HALOPERIDOL
     Indication: BIPOLAR DISORDER
     Dosage: 0.7 MILLIGRAM, ONCE A DAY
     Route: 065
  17. HYDROXYZINE [Suspect]
     Active Substance: HYDROXYZINE HYDROCHLORIDE
     Indication: MANIA
  18. SERTRALINE [Suspect]
     Active Substance: SERTRALINE HYDROCHLORIDE
     Indication: BIPOLAR DISORDER
  19. LORMETAZEPAM [Suspect]
     Active Substance: LORMETAZEPAM
     Indication: PSYCHOTHERAPY
     Dosage: 2 MILLIGRAM, ONCE A DAY
     Route: 065

REACTIONS (5)
  - Serotonin syndrome [Recovered/Resolved]
  - Inappropriate antidiuretic hormone secretion [Unknown]
  - Neuroleptic malignant syndrome [Recovering/Resolving]
  - Polymyalgia rheumatica [Unknown]
  - Normocytic anaemia [Recovering/Resolving]
